FAERS Safety Report 17159639 (Version 1)
Quarter: 2019Q4

REPORT INFORMATION
  Report Type: Spontaneous
  Country: IE (occurrence: IE)
  Receive Date: 20191216
  Receipt Date: 20191216
  Transmission Date: 20200122
  Serious: Yes (Other)
  Sender: FDA-Public Use
  Company Number: IE-MYLANLABS-2019M1122811

PATIENT
  Sex: Female

DRUGS (2)
  1. CIPROFLOXACIN. [Suspect]
     Active Substance: CIPROFLOXACIN
     Indication: PRODUCT USED FOR UNKNOWN INDICATION
     Dosage: UNK
     Route: 065
  2. CORTISONE [Concomitant]
     Active Substance: CORTISONE
     Dosage: UNK

REACTIONS (23)
  - Abdominal discomfort [Unknown]
  - Loss of personal independence in daily activities [Unknown]
  - Nausea [Unknown]
  - Anxiety [Unknown]
  - Asthenia [Unknown]
  - Feeling abnormal [Unknown]
  - Neuralgia [Unknown]
  - Fatigue [Unknown]
  - Adverse event [Unknown]
  - Amnesia [Unknown]
  - Angina pectoris [Unknown]
  - Oedema [Unknown]
  - Mobility decreased [Unknown]
  - Peripheral swelling [Unknown]
  - Major depression [Unknown]
  - Wheelchair user [Unknown]
  - Dyspnoea [Unknown]
  - Memory impairment [Unknown]
  - Gait disturbance [Unknown]
  - Decreased appetite [Unknown]
  - Gastritis [Unknown]
  - Helplessness [Unknown]
  - Pain [Unknown]
